FAERS Safety Report 5113541-9 (Version None)
Quarter: 2006Q3

REPORT INFORMATION
  Report Type: 
  Country: None (occurrence: None)
  Receive Date: 20060920
  Receipt Date: 20060908
  Transmission Date: 20061208
  Serious: Yes (Hospitalization)
  Sender: FDA-Public Use
  Company Number: 227781

PATIENT
  Age: 64 Year
  Sex: Female

DRUGS (5)
  1. RITUXAN [Suspect]
     Indication: NON-HODGKIN'S LYMPHOMA
     Dosage: 375 MG/M2, INTRAVENOUS
     Route: 042
     Dates: start: 20060614
  2. CYCLOPHOSPHAMIDE [Concomitant]
  3. VINCRISTINE SULFATE [Concomitant]
  4. PREDNISOLONE [Concomitant]
  5. SEROTONE                 (AZASETRON HYDROCHLORIDE) [Concomitant]

REACTIONS (2)
  - CONSTIPATION [None]
  - REVERSIBLE POSTERIOR LEUKOENCEPHALOPATHY SYNDROME [None]
